FAERS Safety Report 6671781-1 (Version None)
Quarter: 2010Q2

REPORT INFORMATION
  Report Type: 
  Country: None (occurrence: None)
  Receive Date: 20100406
  Receipt Date: 20100406
  Transmission Date: 20101027
  Serious: No
  Sender: FDA-Public Use
  Company Number: None

PATIENT
  Sex: Female
  Weight: 79.3795 kg

DRUGS (1)
  1. FACTIVE [Suspect]
     Indication: INFLUENZA
     Dosage: 1 TABLET ONCE A DAY PO
     Route: 048
     Dates: start: 20100323, end: 20100327

REACTIONS (2)
  - ABDOMINAL PAIN LOWER [None]
  - URTICARIA [None]
